FAERS Safety Report 9417429 (Version 1)
Quarter: 2013Q3

REPORT INFORMATION
  Report Type: Spontaneous
  Country: US (occurrence: US)
  Receive Date: 20130724
  Receipt Date: 20130724
  Transmission Date: 20140515
  Serious: No
  Sender: FDA-Public Use
  Company Number: US-MYLANLABS-2013S1010708

PATIENT
  Sex: Male
  Weight: 23.13 kg

DRUGS (4)
  1. CLONIDINE TRANSDERMAL SYSTEM USP [Suspect]
     Indication: ATTENTION DEFICIT/HYPERACTIVITY DISORDER
     Dosage: Q WEEK
     Route: 062
  2. CLONIDINE TRANSDERMAL SYSTEM USP [Suspect]
     Indication: OFF LABEL USE
     Dosage: Q WEEK
     Route: 062
  3. CLONIDINE TRANSDERMAL SYSTEM USP [Suspect]
     Indication: ATTENTION DEFICIT/HYPERACTIVITY DISORDER
     Dosage: Q WEEK
     Route: 062
  4. CLONIDINE TRANSDERMAL SYSTEM USP [Suspect]
     Indication: OFF LABEL USE
     Dosage: Q WEEK
     Route: 062

REACTIONS (1)
  - Application site rash [Recovered/Resolved]
